FAERS Safety Report 11551986 (Version 1)
Quarter: 2015Q3

REPORT INFORMATION
  Report Type: Spontaneous
  Country: US (occurrence: US)
  Receive Date: 20150903
  Receipt Date: 20150903
  Transmission Date: 20151125
  Serious: No
  Sender: FDA-Public Use
  Company Number: US-ELI_LILLY_AND_COMPANY-US201006000693

PATIENT
  Sex: Female

DRUGS (6)
  1. METFORMIN [Concomitant]
     Active Substance: METFORMIN HYDROCHLORIDE
     Dosage: 1000 MG, 2/D
  2. HUMALOG [Suspect]
     Active Substance: INSULIN LISPRO
     Dosage: 26 U, OTHER
  3. LANTUS [Concomitant]
     Active Substance: INSULIN GLARGINE
     Dosage: 70 U, EACH EVENING
  4. BABY ASPIRIN [Concomitant]
     Active Substance: ASPIRIN
  5. COZAAR [Concomitant]
     Active Substance: LOSARTAN POTASSIUM
  6. HUMALOG [Suspect]
     Active Substance: INSULIN LISPRO
     Indication: DIABETES MELLITUS
     Dosage: 20 U, OTHER

REACTIONS (4)
  - Blood glucose increased [Unknown]
  - Drug dose omission [Unknown]
  - Renal impairment [Recovered/Resolved]
  - Visual impairment [Not Recovered/Not Resolved]
